FAERS Safety Report 6626652-3 (Version None)
Quarter: 2010Q1

REPORT INFORMATION
  Report Type: 
  Country: None (occurrence: None)
  Receive Date: 20100305
  Receipt Date: 20100219
  Transmission Date: 20100710
  Serious: Yes (Other)
  Sender: FDA-Public Use
  Company Number: S06-NOR-04143-01

PATIENT
  Age: 34 Year
  Sex: Female
  Weight: 55 kg

DRUGS (2)
  1. ESCITALOPRAM [Suspect]
     Indication: DEPRESSION
     Dosage: 15 MG (15 MG, 1 IN 1 D), ORAL
     Route: 048
     Dates: start: 20040303
  2. ESCITALOPRAM [Suspect]
     Indication: DEPRESSION
     Dosage: 10 MG (10 MG, 1 IN 1 D),ORAL
     Route: 048
     Dates: end: 20060825

REACTIONS (4)
  - ABORTION SPONTANEOUS [None]
  - BLOOD HUMAN CHORIONIC GONADOTROPIN DECREASED [None]
  - DRUG EXPOSURE DURING PREGNANCY [None]
  - PREGNANCY [None]
